FAERS Safety Report 21898958 (Version 1)
Quarter: 2023Q1

REPORT INFORMATION
  Report Type: Report from Study
  Country: AE (occurrence: None)
  Receive Date: 20230123
  Receipt Date: 20230123
  Transmission Date: 20230417
  Serious: Yes (Life-Threatening, Hospitalization)
  Sender: FDA-Public Use
  Company Number: 2023A014591

PATIENT
  Age: 43 Year
  Sex: Male
  Weight: 63 kg

DRUGS (4)
  1. CILGAVIMAB\TIXAGEVIMAB [Suspect]
     Active Substance: CILGAVIMAB\TIXAGEVIMAB
     Indication: COVID-19
     Dosage: SINGLE DOSE OF AZD7442 (2 IM INJECTIONS OF AZD8895 AND AZD1061)/ONCE/SINGLE ADMINISTRATION
     Route: 030
     Dates: start: 20221110, end: 20221110
  2. COVID-19 VACCINE [Concomitant]
     Indication: COVID-19
     Route: 065
     Dates: start: 20210621
  3. COVID-19 VACCINE [Concomitant]
     Indication: COVID-19
     Route: 065
     Dates: start: 20210705
  4. COVID-19 VACCINE [Concomitant]
     Indication: COVID-19
     Route: 065
     Dates: start: 20220105

REACTIONS (1)
  - Aplastic anaemia [Recovered/Resolved]

NARRATIVE: CASE EVENT DATE: 20221220
